FAERS Safety Report 13686825 (Version 7)
Quarter: 2017Q3

REPORT INFORMATION
  Report Type: Report from Study
  Country: TZ (occurrence: TZ)
  Receive Date: 20170623
  Receipt Date: 20170821
  Transmission Date: 20171127
  Serious: Yes (Death, Life-Threatening, Hospitalization, Other)
  Sender: FDA-Public Use
  Company Number: TZ-BRISTOL-MYERS SQUIBB COMPANY-BMS-2017-052094

PATIENT
  Age: 0 Day
  Sex: Female
  Weight: 2.2 kg

DRUGS (6)
  1. LAMIVUDINE,ZIDOVUDINE [Suspect]
     Active Substance: LAMIVUDINE\ZIDOVUDINE
     Indication: PROPHYLAXIS AGAINST HIV INFECTION
     Dosage: 450 MG, BID
     Route: 064
     Dates: start: 20170313, end: 20170604
  2. EFAVIRENZ [Suspect]
     Active Substance: EFAVIRENZ
     Indication: PRODUCT USED FOR UNKNOWN INDICATION
     Dosage: 600 MG, QD
     Route: 063
     Dates: end: 20170612
  3. LAMIVUDINE,ZIDOVUDINE [Suspect]
     Active Substance: LAMIVUDINE\ZIDOVUDINE
     Indication: PRODUCT USED FOR UNKNOWN INDICATION
     Dosage: 450 MG, BID
     Route: 063
     Dates: end: 20170612
  4. SULFAMETHOXAZOLE,TRIMETHOPRIM [Suspect]
     Active Substance: SULFAMETHOXAZOLE\TRIMETHOPRIM
     Indication: PRODUCT USED FOR UNKNOWN INDICATION
     Dosage: UNK, QD
     Route: 064
  5. EFAVIRENZ [Suspect]
     Active Substance: EFAVIRENZ
     Indication: PROPHYLAXIS AGAINST HIV INFECTION
     Dosage: 600 MG, QD
     Route: 064
     Dates: start: 20170313, end: 20170604
  6. HEMOVIT                            /00023601/ [Concomitant]
     Indication: PRODUCT USED FOR UNKNOWN INDICATION
     Dosage: UNK, QD
     Route: 064

REACTIONS (8)
  - White blood cell count decreased [Unknown]
  - Exposure during breast feeding [Unknown]
  - Premature baby [Not Recovered/Not Resolved]
  - Foetal exposure during pregnancy [Unknown]
  - Anaemia [Not Recovered/Not Resolved]
  - Platelet count decreased [Unknown]
  - Necrotising colitis [Fatal]
  - Sepsis neonatal [Unknown]

NARRATIVE: CASE EVENT DATE: 20170604
